FAERS Safety Report 16479201 (Version 1)
Quarter: 2019Q2

REPORT INFORMATION
  Report Type: Spontaneous
  Country: US (occurrence: US)
  Receive Date: 20190626
  Receipt Date: 20190626
  Transmission Date: 20190711
  Serious: Yes (Other)
  Sender: FDA-Public Use
  Company Number: US-SAOL THERAPEUTICS-2019SAO00093

PATIENT
  Age: 25 Year
  Sex: Male

DRUGS (3)
  1. LIORESAL [Suspect]
     Active Substance: BACLOFEN
     Dosage: 609.8 ?G, \DAY
     Route: 037
     Dates: start: 20190314
  2. LIORESAL [Suspect]
     Active Substance: BACLOFEN
     Dosage: 610 ?G, \DAY
     Route: 037
  3. LIORESAL [Suspect]
     Active Substance: BACLOFEN
     Indication: CEREBRAL PALSY
     Dosage: 610.4 ?G, \DAY
     Route: 037

REACTIONS (3)
  - Device malfunction [Recovered/Resolved]
  - Irritability [Recovered/Resolved]
  - Muscle spasticity [Recovered/Resolved]

NARRATIVE: CASE EVENT DATE: 201903
